FAERS Safety Report 8332805-9 (Version None)
Quarter: 2012Q1

REPORT INFORMATION
  Report Type: 
  Country: None (occurrence: None)
  Receive Date: 20120327
  Receipt Date: 20101129
  Transmission Date: 20120608
  Serious: Yes (Other)
  Sender: FDA-Public Use
  Company Number: PHEH2010US01320

PATIENT
  Age: 73 Year
  Sex: Female
  Weight: 72.1 kg

DRUGS (3)
  1. GLEEVEC [Suspect]
     Indication: GASTROINTESTINAL STROMAL TUMOUR
     Dosage: 400 MG, ONCE A DAY; 300 MG, QD, ORAL; 300 MG, QD; 200 MG DAILY, ORAL
     Route: 048
     Dates: start: 20100315
  2. GLEEVEC [Suspect]
     Indication: GASTROINTESTINAL STROMAL TUMOUR
     Dosage: 400 MG, ONCE A DAY; 300 MG, QD, ORAL; 300 MG, QD; 200 MG DAILY, ORAL
     Route: 048
     Dates: start: 20091201
  3. GLEEVEC [Suspect]
     Indication: GASTROINTESTINAL STROMAL TUMOUR
     Dosage: 400 MG, ONCE A DAY; 300 MG, QD, ORAL; 300 MG, QD; 200 MG DAILY, ORAL
     Route: 048
     Dates: start: 20100126

REACTIONS (22)
  - CHILLS [None]
  - FATIGUE [None]
  - EYE SWELLING [None]
  - OCULAR HYPERAEMIA [None]
  - OEDEMA PERIPHERAL [None]
  - DRY SKIN [None]
  - SKIN CHAPPED [None]
  - ALOPECIA [None]
  - RASH [None]
  - ABDOMINAL DISTENSION [None]
  - EYE OEDEMA [None]
  - DEPRESSION [None]
  - LACRIMATION INCREASED [None]
  - RASH GENERALISED [None]
  - ARTHRALGIA [None]
  - MALAISE [None]
  - BLISTER [None]
  - URINE COLOUR ABNORMAL [None]
  - PSORIASIS [None]
  - SINUS DISORDER [None]
  - EAR DISORDER [None]
  - CONJUNCTIVITIS [None]
